FAERS Safety Report 10704529 (Version 2)
Quarter: 2015Q1

REPORT INFORMATION
  Report Type: Spontaneous
  Country: BR (occurrence: BR)
  Receive Date: 20150112
  Receipt Date: 20150123
  Transmission Date: 20150721
  Serious: Yes (Other)
  Sender: FDA-Public Use
  Company Number: PHHY2015BR002504

PATIENT
  Age: 7 Year
  Sex: Male

DRUGS (3)
  1. TEGRETOL [Suspect]
     Active Substance: CARBAMAZEPINE
     Indication: SEIZURE
     Dosage: 8 ML, BID (IN THE MORNING AND AT NIGHT)
     Route: 048
     Dates: start: 20120724, end: 201307
  2. TEGRETOL [Suspect]
     Active Substance: CARBAMAZEPINE
     Dosage: 8 ML, BID (IN THE MORNING AND AT NIGHT)
     Route: 048
  3. CARBAMAZEPINE. [Suspect]
     Active Substance: CARBAMAZEPINE
     Indication: SEIZURE
     Dosage: 8 ML, BID (IN THE MORNING AND AT NIGHT)
     Route: 048
     Dates: start: 201307

REACTIONS (6)
  - Anaphylactic shock [Not Recovered/Not Resolved]
  - Sleep disorder [Unknown]
  - Psychomotor hyperactivity [Recovering/Resolving]
  - Seizure [Recovered/Resolved]
  - Anxiety [Unknown]
  - Vision blurred [Unknown]

NARRATIVE: CASE EVENT DATE: 20131223
